FAERS Safety Report 5703089-2 (Version None)
Quarter: 2008Q2

REPORT INFORMATION
  Report Type: 
  Country: None (occurrence: None)
  Receive Date: 20080411
  Receipt Date: 20080406
  Transmission Date: 20081010
  Serious: Yes (Hospitalization)
  Sender: FDA-Public Use
  Company Number: GB-ROCHE-557232

PATIENT
  Sex: Female
  Weight: 103.5 kg

DRUGS (7)
  1. ORLISTAT [Suspect]
     Indication: OBESITY
     Route: 048
     Dates: start: 20070801, end: 20071201
  2. SERETIDE [Concomitant]
     Indication: ASTHMA
     Dosage: REPORTED AS SERETIDE 125 SPRAY
     Route: 065
  3. SERETIDE [Concomitant]
     Dosage: REPORTED AS SERETIDE 125 SPRAY
     Route: 065
  4. SALAMOL [Concomitant]
     Indication: ASTHMA
     Dosage: REPORTED AS SALAMOL 200 SPRAY
     Route: 065
  5. AMITRIPTYLINE HCL [Concomitant]
     Indication: DEPRESSION
     Route: 048
  6. CITALOPRAM HYDROBROMIDE [Concomitant]
     Indication: DEPRESSION
     Route: 048
  7. ACYCLOVIR [Concomitant]
     Route: 048

REACTIONS (1)
  - ASTHMA [None]
